FAERS Safety Report 16785947 (Version 1)
Quarter: 2019Q3

REPORT INFORMATION
  Report Type: Report from Study
  Country: CA (occurrence: CA)
  Receive Date: 20190909
  Receipt Date: 20190909
  Transmission Date: 20191005
  Serious: Yes (Other)
  Sender: FDA-Public Use
  Company Number: CA-PFIZER INC-2019384684

PATIENT
  Age: 45 Year
  Sex: Female
  Weight: 126 kg

DRUGS (32)
  1. METHOTREXATE SODIUM. [Suspect]
     Active Substance: METHOTREXATE SODIUM
     Dosage: 20 MG, UNK
     Route: 065
  2. BELIMUMAB [Suspect]
     Active Substance: BELIMUMAB
     Dosage: 1250.0 MG, UNK
     Route: 042
  3. ELAVIL [Concomitant]
     Active Substance: AMITRIPTYLINE HYDROCHLORIDE
     Dosage: 50.0 MG, 4 EVERY 1 DAY(S)
     Route: 065
  4. TECTA [Concomitant]
     Active Substance: PANTOPRAZOLE MAGNESIUM
     Dosage: UNK
     Route: 065
  5. ROSUVASTATIN CALCIUM. [Suspect]
     Active Substance: ROSUVASTATIN CALCIUM
     Indication: PRODUCT USED FOR UNKNOWN INDICATION
     Dosage: UNK
     Route: 065
  6. COLACE [Concomitant]
     Active Substance: DOCUSATE SODIUM
     Dosage: UNK
     Route: 065
  7. NIFEDIPINE. [Concomitant]
     Active Substance: NIFEDIPINE
     Indication: HYPERTENSION
     Dosage: 30.0 MG, 1 EVERY 1 DAY(S)
     Route: 048
  8. BELIMUMAB [Suspect]
     Active Substance: BELIMUMAB
     Dosage: 1090.0 MG, UNK
     Route: 042
  9. BELIMUMAB [Suspect]
     Active Substance: BELIMUMAB
     Dosage: 1250.0 MG, UNK
     Route: 042
  10. AMLODIPINE BESILATE [Concomitant]
     Active Substance: AMLODIPINE BESYLATE
     Dosage: 10.0 MG, 1 EVERY 1 DAY(S)
     Route: 065
  11. DOMPERIDONE [Concomitant]
     Active Substance: DOMPERIDONE
     Dosage: 10.0 MG, 2 EVERY 1 DAY(S)
     Route: 065
  12. FOLIC ACID. [Concomitant]
     Active Substance: FOLIC ACID
     Indication: SYSTEMIC LUPUS ERYTHEMATOSUS
     Dosage: UNK UNK, 1 EVERY 1 DAY(S)
     Route: 048
  13. MELOXICAM. [Concomitant]
     Active Substance: MELOXICAM
     Dosage: UNK
  14. PREDNISONE. [Concomitant]
     Active Substance: PREDNISONE
     Indication: SYSTEMIC LUPUS ERYTHEMATOSUS
     Dosage: 5.0 MG, 1 VERY 1 DAY(S)
     Route: 048
  15. ZOPICLONE [Concomitant]
     Active Substance: ZOPICLONE
     Dosage: 17.0 MG, UNK
     Route: 065
  16. METHOTREXATE SODIUM. [Suspect]
     Active Substance: METHOTREXATE SODIUM
     Indication: SYSTEMIC LUPUS ERYTHEMATOSUS
     Dosage: UNK
     Route: 065
  17. BELIMUMAB [Suspect]
     Active Substance: BELIMUMAB
     Indication: SYSTEMIC LUPUS ERYTHEMATOSUS
     Dosage: UNK
     Route: 042
  18. BELIMUMAB [Suspect]
     Active Substance: BELIMUMAB
     Dosage: UNK
     Route: 042
  19. ESOMEPRAZOLE MAGNESIUM TRIHYDRATE [Concomitant]
     Active Substance: ESOMEPRAZOLE MAGNESIUM
     Dosage: 40.0 MG, 1 EVERY 1 DAY(S)
     Route: 065
  20. REFLEX [CAMPHOR;MENTHOL;METHYL SALICYLATE;PINUS SPP. OIL] [Concomitant]
     Indication: PAIN IN EXTREMITY
     Dosage: UNK
     Route: 065
  21. SYNTHROID [Concomitant]
     Active Substance: LEVOTHYROXINE SODIUM
     Dosage: UNK
     Route: 065
  22. BELIMUMAB [Suspect]
     Active Substance: BELIMUMAB
     Dosage: UNK
     Route: 042
  23. ROSUVASTATIN CALCIUM. [Suspect]
     Active Substance: ROSUVASTATIN CALCIUM
     Indication: BLOOD CHOLESTEROL INCREASED
     Dosage: UNK
     Route: 065
  24. TYLENOL [Concomitant]
     Active Substance: ACETAMINOPHEN
     Dosage: UNK
     Route: 065
  25. BELIMUMAB [Suspect]
     Active Substance: BELIMUMAB
     Dosage: UNK
     Route: 042
  26. NIFEDIPINE. [Concomitant]
     Active Substance: NIFEDIPINE
     Dosage: 30.0 MG, 1 EVERY 1 DAY(S)
     Route: 065
  27. BELIMUMAB [Suspect]
     Active Substance: BELIMUMAB
     Dosage: 1250.0 MG, UNK
     Route: 042
  28. CALCIUM [Concomitant]
     Active Substance: CALCIUM
     Indication: SYSTEMIC LUPUS ERYTHEMATOSUS
     Dosage: 500.0 MG, 3 EVERY 1 DAY(S)
     Route: 065
  29. BELIMUMAB [Suspect]
     Active Substance: BELIMUMAB
     Dosage: UNK
     Route: 042
  30. BELIMUMAB [Suspect]
     Active Substance: BELIMUMAB
     Dosage: 1090.0 MG, UNK
     Route: 042
  31. BELIMUMAB [Suspect]
     Active Substance: BELIMUMAB
     Dosage: 1090.0 MG, UNK
     Route: 042
  32. ACTONEL [Concomitant]
     Active Substance: RISEDRONATE SODIUM
     Dosage: 35.0 MG, UNK
     Route: 065

REACTIONS (43)
  - Arthralgia [Not Recovered/Not Resolved]
  - Basal cell carcinoma [Not Recovered/Not Resolved]
  - Erythema [Not Recovered/Not Resolved]
  - Fatigue [Not Recovered/Not Resolved]
  - Flushing [Not Recovered/Not Resolved]
  - Gastroenteritis [Not Recovered/Not Resolved]
  - Hernia [Not Recovered/Not Resolved]
  - Malaise [Not Recovered/Not Resolved]
  - Sinus congestion [Not Recovered/Not Resolved]
  - Wound [Not Recovered/Not Resolved]
  - Aphasia [Not Recovered/Not Resolved]
  - Disability [Not Recovered/Not Resolved]
  - Ill-defined disorder [Not Recovered/Not Resolved]
  - Smear cervix abnormal [Not Recovered/Not Resolved]
  - Blood cholesterol increased [Not Recovered/Not Resolved]
  - Melanocytic naevus [Not Recovered/Not Resolved]
  - Pain in extremity [Not Recovered/Not Resolved]
  - Tremor [Not Recovered/Not Resolved]
  - Insomnia [Not Recovered/Not Resolved]
  - Productive cough [Not Recovered/Not Resolved]
  - Uterine prolapse [Not Recovered/Not Resolved]
  - Arthritis [Not Recovered/Not Resolved]
  - Arthropathy [Not Recovered/Not Resolved]
  - Biopsy breast [Not Recovered/Not Resolved]
  - Acrochordon [Not Recovered/Not Resolved]
  - Cyst [Not Recovered/Not Resolved]
  - Muscle spasms [Not Recovered/Not Resolved]
  - Nausea [Not Recovered/Not Resolved]
  - Sinusitis [Not Recovered/Not Resolved]
  - Urticaria [Not Recovered/Not Resolved]
  - Diarrhoea [Not Recovered/Not Resolved]
  - Epistaxis [Not Recovered/Not Resolved]
  - Initial insomnia [Not Recovered/Not Resolved]
  - Lower respiratory tract infection [Not Recovered/Not Resolved]
  - Oral herpes [Not Recovered/Not Resolved]
  - Photosensitivity reaction [Not Recovered/Not Resolved]
  - Pyrexia [Not Recovered/Not Resolved]
  - Skin discolouration [Not Recovered/Not Resolved]
  - Skin lesion [Not Recovered/Not Resolved]
  - Vomiting [Not Recovered/Not Resolved]
  - Contusion [Not Recovered/Not Resolved]
  - Pain [Not Recovered/Not Resolved]
  - Peripheral swelling [Not Recovered/Not Resolved]
